FAERS Safety Report 6877308-3 (Version None)
Quarter: 2010Q3

REPORT INFORMATION
  Report Type: 
  Country: None (occurrence: None)
  Receive Date: 20100727
  Receipt Date: 20090826
  Transmission Date: 20110219
  Serious: No
  Sender: FDA-Public Use
  Company Number: US-ABBOTT-09P-163-0594643-00

PATIENT
  Sex: Female
  Weight: 66.738 kg

DRUGS (2)
  1. SYNTHROID [Suspect]
     Indication: HYPOTHYROIDISM
     Dosage: 1 IN 1 DAYS, VARYING DOSES
     Dates: start: 19900101
  2. PREVACID [Concomitant]
     Indication: GASTRITIS

REACTIONS (2)
  - PRURITUS GENERALISED [None]
  - SOMNOLENCE [None]
